FAERS Safety Report 8298695-8 (Version None)
Quarter: 2012Q2

REPORT INFORMATION
  Report Type: 
  Country: None (occurrence: None)
  Receive Date: 20120419
  Receipt Date: 20120417
  Transmission Date: 20120825
  Serious: No
  Sender: FDA-Public Use
  Company Number: US-BAYER-2012-030221

PATIENT
  Age: 78 Year
  Sex: Female

DRUGS (6)
  1. CLONIDINE [Concomitant]
  2. GADAVIST [Suspect]
     Indication: NUCLEAR MAGNETIC RESONANCE IMAGING
     Dosage: 6 ML, ONCE
     Dates: start: 20120323, end: 20120323
  3. ZOCOR [Concomitant]
     Dosage: 40 MG, UNK
  4. LISINOPRIL [Concomitant]
     Dosage: 20 MG, UNK
  5. NORVASC [Concomitant]
     Dosage: 5 MG, UNK
  6. SYMBICORT [Concomitant]
     Dosage: 4.5 ?G, UNK

REACTIONS (4)
  - EYE SWELLING [None]
  - URTICARIA [None]
  - OCULAR HYPERAEMIA [None]
  - LIP SWELLING [None]
